FAERS Safety Report 17275157 (Version 4)
Quarter: 2020Q1

REPORT INFORMATION
  Report Type: Report from Study
  Country: US (occurrence: US)
  Receive Date: 20200116
  Receipt Date: 20200213
  Transmission Date: 20200409
  Serious: Yes (Hospitalization, Other)
  Sender: FDA-Public Use
  Company Number: US-SA-2019SA229557

PATIENT
  Age: 24 Year
  Sex: Female

DRUGS (5)
  1. VENTOLIN HFA [Concomitant]
     Active Substance: ALBUTEROL SULFATE
     Dosage: 2 DF, QID
     Route: 065
  2. ALEMTUZUMAB [Suspect]
     Active Substance: ALEMTUZUMAB
     Dosage: 12 MG (WHOLE 40 HOURS FOR FIRST ROUND), QD
     Route: 041
     Dates: start: 20180723, end: 20180727
  3. INDOMETHACIN [INDOMETACIN] [Concomitant]
     Active Substance: INDOMETHACIN
     Dosage: 50 MG, BID (1 PO)
     Route: 048
  4. DULERA [Concomitant]
     Active Substance: FORMOTEROL FUMARATE DIHYDRATE\MOMETASONE FUROATE
     Dosage: 100- 5 MCG/ ACTUATION (2 PUFFS Q12H)
  5. ALEMTUZUMAB [Suspect]
     Active Substance: ALEMTUZUMAB
     Indication: RELAPSING-REMITTING MULTIPLE SCLEROSIS
     Dosage: 12 MG, QD
     Route: 041
     Dates: start: 20190731, end: 20190802

REACTIONS (13)
  - Platelet count decreased [Not Recovered/Not Resolved]
  - Haematocrit decreased [Not Recovered/Not Resolved]
  - Lymphocyte morphology abnormal [Unknown]
  - Peritonsillar abscess [Unknown]
  - Urine abnormality [Unknown]
  - Neutrophil count increased [Unknown]
  - Sinusitis [Not Recovered/Not Resolved]
  - Immune thrombocytopenic purpura [Recovered/Resolved]
  - Petechiae [Recovered/Resolved]
  - White blood cell count decreased [Unknown]
  - Neutrophil count decreased [Unknown]
  - Feeling of body temperature change [Unknown]
  - Decreased vibratory sense [Unknown]

NARRATIVE: CASE EVENT DATE: 201908
